FAERS Safety Report 19777678 (Version 1)
Quarter: 2021Q3

REPORT INFORMATION
  Report Type: Spontaneous
  Country: US (occurrence: US)
  Receive Date: 20210830
  Receipt Date: 20210830
  Transmission Date: 20211014
  Serious: No
  Sender: FDA-Public Use
  Company Number: None

PATIENT
  Age: 52 Year
  Sex: Male
  Weight: 66.68 kg

DRUGS (6)
  1. SIMPONI [Suspect]
     Active Substance: GOLIMUMAB
     Indication: COLITIS ULCERATIVE
  2. SIMPONI [Suspect]
     Active Substance: GOLIMUMAB
     Indication: ANAL POLYP
  3. SIMPONI [Suspect]
     Active Substance: GOLIMUMAB
     Indication: RECTAL HAEMORRHAGE
     Dosage: ?          OTHER FREQUENCY:DAY 1; 200 MG(2 PENS) SC ON DAY 11 THEN 100 MG (1  PEN) ON DAY 14 AS DIRECTED?
     Route: 058
     Dates: start: 202108
  4. SIMPONI [Suspect]
     Active Substance: GOLIMUMAB
     Indication: RHEUMATOID ARTHRITIS
  5. SIMPONI [Suspect]
     Active Substance: GOLIMUMAB
     Indication: COLITIS ULCERATIVE
     Dosage: ?          OTHER FREQUENCY:DAY 1; 200 MG(2 PENS) SC ON DAY 11 THEN 100 MG (1  PEN) ON DAY 14 AS DIRECTED?
     Route: 058
     Dates: start: 202108
  6. SIMPONI [Suspect]
     Active Substance: GOLIMUMAB
     Indication: COLITIS
     Dosage: ?          OTHER FREQUENCY:DAY 1; 200 MG(2 PENS) SC ON DAY 11 THEN 100 MG (1  PEN) ON DAY 14 AS DIRECTED?
     Route: 058
     Dates: start: 202108

REACTIONS (2)
  - Ileostomy [None]
  - Infection [None]
